FAERS Safety Report 9842792 (Version 2)
Quarter: 2014Q1

REPORT INFORMATION
  Report Type: Spontaneous
  Country: US (occurrence: US)
  Receive Date: 20140124
  Receipt Date: 20140127
  Transmission Date: 20141002
  Serious: Yes (Other)
  Sender: FDA-Public Use
  Company Number: US-UCBSA-109187

PATIENT
  Sex: 0

DRUGS (1)
  1. METHYLPHENIDATE ER [Suspect]

REACTIONS (5)
  - Tachycardia [Unknown]
  - Irritability [Unknown]
  - Change in sustained attention [Unknown]
  - Nausea [Unknown]
  - Abdominal pain upper [Unknown]
